FAERS Safety Report 8145947-8 (Version None)
Quarter: 2012Q1

REPORT INFORMATION
  Report Type: 
  Country: None (occurrence: None)
  Receive Date: 20120217
  Receipt Date: 20110630
  Transmission Date: 20120608
  Serious: No
  Sender: FDA-Public Use
  Company Number: US-ABBOTT-11P-163-0835379-00

PATIENT
  Sex: Female
  Weight: 74.91 kg

DRUGS (3)
  1. SIMCOR [Suspect]
     Indication: HYPERCHOLESTEROLAEMIA
     Dosage: 500/20MG AT BEDTIME
     Dates: start: 20110628
  2. SIMCOR [Suspect]
     Indication: CORONARY ANGIOPLASTY
  3. HYZAAR [Concomitant]
     Indication: PRODUCT USED FOR UNKNOWN INDICATION

REACTIONS (2)
  - DIARRHOEA [None]
  - DRUG DOSE OMISSION [None]
